FAERS Safety Report 6708227-0 (Version None)
Quarter: 2010Q2

REPORT INFORMATION
  Report Type: 
  Country: None (occurrence: None)
  Receive Date: 20100503
  Receipt Date: 20090527
  Transmission Date: 20101027
  Serious: No
  Sender: FDA-Public Use
  Company Number: US-ASTRAZENECA-2009UW13419

PATIENT
  Sex: Female

DRUGS (5)
  1. NEXIUM [Suspect]
     Indication: GASTROOESOPHAGEAL REFLUX DISEASE
     Route: 048
  2. CYMBALTA [Concomitant]
  3. PROVIGIL [Concomitant]
  4. TYLENOL-500 [Concomitant]
  5. IBUPROFEN [Concomitant]

REACTIONS (1)
  - DRUG SCREEN POSITIVE [None]
